FAERS Safety Report 16735969 (Version 1)
Quarter: 2019Q3

REPORT INFORMATION
  Report Type: Spontaneous
  Country: US (occurrence: US)
  Receive Date: 20190823
  Receipt Date: 20190823
  Transmission Date: 20191005
  Serious: No
  Sender: FDA-Public Use
  Company Number: US-PFIZER INC-2019359779

PATIENT
  Age: 76 Year
  Sex: Male
  Weight: 84.37 kg

DRUGS (1)
  1. CAVERJECT [Suspect]
     Active Substance: ALPROSTADIL
     Indication: ERECTILE DYSFUNCTION
     Dosage: 40 MG, AS NEEDED (INJECT 1 ML BY INTRA-CAVERNOSAL ROUTE X 1 DOSE)
     Route: 017

REACTIONS (1)
  - Drug ineffective [Unknown]
